FAERS Safety Report 8588052 (Version 3)
Quarter: 2012Q4

REPORT INFORMATION
  Report Type: 
  Country: NL (occurrence: NL)
  Receive Date: 20120413
  Receipt Date: 20120829
  Transmission Date: 20130627
  Serious: Yes (Other)
  Sender: FDA-Public Use
  Company Number: NL-BAXTER-2012BAX002205

PATIENT
  Age: 46 None
  Sex: Female

DRUGS (6)
  1. KIOVIG 100 MG/ML SOLUTION POUR PERFUSION (20 G/200 ML) [Suspect]
     Indication: MULTIPLE SCLEROSIS
     Route: 042
     Dates: start: 20070312
  2. KIOVIG 100 MG/ML SOLUTION POUR PERFUSION (20 G/200 ML) [Suspect]
     Indication: INTENTIONAL USE FOR UNLABELED INDICATION
     Route: 042
     Dates: start: 20120319
  3. KIOVIG [Suspect]
     Indication: MULTIPLE SCLEROSIS
     Route: 042
     Dates: start: 20070312
  4. KIOVIG [Suspect]
     Indication: INTENTIONAL USE FOR UNLABELED INDICATION
     Route: 042
     Dates: start: 20120319
  5. KIOVIG [Suspect]
     Indication: MULTIPLE SCLEROSIS
     Route: 042
     Dates: start: 20070312
  6. KIOVIG [Suspect]
     Indication: INTENTIONAL USE FOR UNLABELED INDICATION
     Route: 042
     Dates: start: 20120319

REACTIONS (7)
  - Angina pectoris [Recovering/Resolving]
  - Respiratory disorder [Unknown]
  - Multiple sclerosis [Unknown]
  - Dizziness [Not Recovered/Not Resolved]
  - Off label use [None]
  - Nausea [None]
  - Influenza like illness [None]
